FAERS Safety Report 18366707 (Version 1)
Quarter: 2020Q4

REPORT INFORMATION
  Report Type: Spontaneous
  Country: FR (occurrence: FR)
  Receive Date: 20201009
  Receipt Date: 20201009
  Transmission Date: 20210114
  Serious: Yes (Hospitalization, Other)
  Sender: FDA-Public Use
  Company Number: FR-PFIZER INC-2020383997

PATIENT
  Age: 58 Year
  Sex: Female

DRUGS (2)
  1. IBRANCE [Suspect]
     Active Substance: PALBOCICLIB
     Indication: INVASIVE LOBULAR BREAST CARCINOMA
     Dosage: 125 MG, 1X/DAY
     Route: 048
     Dates: start: 20200811, end: 20200824
  2. ARIMIDEX [Suspect]
     Active Substance: ANASTROZOLE
     Indication: INVASIVE LOBULAR BREAST CARCINOMA
     Dosage: 1 MG, 1X/DAY
     Route: 048
     Dates: start: 20200731, end: 20200824

REACTIONS (2)
  - Hepatocellular injury [Recovering/Resolving]
  - Cholestasis [Recovering/Resolving]

NARRATIVE: CASE EVENT DATE: 20200807
